FAERS Safety Report 8790288 (Version 1)
Quarter: 2012Q4

REPORT INFORMATION
  Report Type: 
  Country: US (occurrence: US)
  Receive Date: 20120917
  Receipt Date: 20120917
  Transmission Date: 20130627
  Serious: Yes (Hospitalization, Other)
  Sender: FDA-Public Use
  Company Number: US-BAYER-2012-096078

PATIENT
  Age: 38 Year
  Sex: Female
  Weight: 124.72 kg

DRUGS (11)
  1. YASMIN [Suspect]
     Dosage: UNK
  2. LEXAPRO [Concomitant]
     Dosage: 10 mg, day
     Route: 048
     Dates: start: 20060302
  3. ASA [Concomitant]
     Dosage: 81 mg, day
     Route: 048
     Dates: start: 20060302
  4. LISINOPRIL [Concomitant]
     Dosage: 20 mg, day
     Route: 048
     Dates: start: 20060302
  5. CRESTOR [Concomitant]
     Dosage: 10 mg, day
     Route: 048
     Dates: start: 20060302
  6. ACTOS [Concomitant]
     Dosage: 45 mg, day
     Route: 048
     Dates: start: 20060302
  7. METFORMIN [Concomitant]
     Dosage: 1000 mg, twice a day
     Route: 048
     Dates: start: 20060302
  8. ZOCOR [Concomitant]
     Dosage: UNK
  9. GLUCOPHAGE [Concomitant]
     Dosage: UNK
  10. PROPOXYPHENE [Concomitant]
     Indication: PAIN
     Dosage: 1 tablet every 4-6 hours if needed
  11. ACETAMINOPHEN [Concomitant]
     Indication: PAIN
     Dosage: 1 tablet every 4-6 hours if needed

REACTIONS (2)
  - Pulmonary embolism [None]
  - Cholelithiasis [None]
